FAERS Safety Report 9530384 (Version 2)
Quarter: 2013Q4

REPORT INFORMATION
  Report Type: Spontaneous
  Country: CN (occurrence: CN)
  Receive Date: 20130918
  Receipt Date: 20131002
  Transmission Date: 20140711
  Serious: Yes (Death, Other)
  Sender: FDA-Public Use
  Company Number: CN-ROCHE-1272828

PATIENT
  Age: 77 Year
  Sex: Female
  Weight: 55 kg

DRUGS (10)
  1. RITUXIMAB [Suspect]
     Indication: NON-HODGKIN^S LYMPHOMA
     Route: 042
     Dates: start: 20120822, end: 20120822
  2. SODIUM CHLORIDE [Concomitant]
     Dosage: LEVOFLOXACIN AND SODIUM CLORIDE INJECTION 0.5 G IVGTT
     Route: 042
     Dates: start: 20120814, end: 20120816
  3. LEVOFLOXACIN [Concomitant]
     Dosage: LEVOFLOXACIN AND SODIUM CLORIDE INJECTION 0.5 G IVGTT
     Route: 042
     Dates: start: 20120814, end: 20120816
  4. SULBACTAM SODIUM [Concomitant]
     Dosage: CEFOTAXIME SODIUM AND SULBACTAM SODIUM FOR INJECTION: DOSE 2.25 G IVGTT
     Route: 042
     Dates: start: 20120814, end: 20120816
  5. PROMETHAZINE [Concomitant]
     Route: 030
  6. CEFOTAXIME [Concomitant]
     Dosage: CEFOTAXIME SODIUM AND SULBACTAM SODIUM FOR INJECTION: DOSE 2.25 G IVGTT
     Route: 042
     Dates: start: 20120814, end: 20120816
  7. CYCLOPHOSPHAMIDE [Concomitant]
     Route: 065
     Dates: start: 20120822
  8. DOXORUBICIN HYDROCHLORIDE [Concomitant]
     Route: 065
     Dates: start: 20120822
  9. VINCRISTINE SULPHATE [Concomitant]
     Route: 065
     Dates: start: 20120822
  10. PREDNISONE [Concomitant]
     Route: 065
     Dates: start: 20120822

REACTIONS (6)
  - Bronchospasm [Fatal]
  - Disease progression [Fatal]
  - Drug hypersensitivity [Fatal]
  - Asphyxia [Fatal]
  - Lung infection [Fatal]
  - Type 2 diabetes mellitus [Fatal]
